FAERS Safety Report 7088004-4 (Version None)
Quarter: 2010Q4

REPORT INFORMATION
  Report Type: 
  Country: None (occurrence: None)
  Receive Date: 20101001
  Receipt Date: 20100624
  Transmission Date: 20110411
  Serious: No
  Sender: FDA-Public Use
  Company Number: 1000014725

PATIENT
  Sex: Male

DRUGS (1)
  1. BYSTOLIC [Suspect]

REACTIONS (3)
  - DRUG INEFFECTIVE [None]
  - PERIPHERAL COLDNESS [None]
  - SEXUAL DYSFUNCTION [None]
